FAERS Safety Report 4579767-8 (Version None)
Quarter: 2005Q1

REPORT INFORMATION
  Report Type: 
  Country: None (occurrence: None)
  Receive Date: 20050210
  Receipt Date: 20050126
  Transmission Date: 20050727
  Serious: Yes (Death)
  Sender: FDA-Public Use
  Company Number: 2004AL000748

PATIENT
  Age: 58 Year
  Sex: Male

DRUGS (2)
  1. DILTIAZEM HYDROCHLORIDE [Suspect]
     Dosage: PO
     Route: 048
  2. CARISOPRODOL [Suspect]
     Dosage: PO
     Route: 048

REACTIONS (19)
  - ACCIDENT [None]
  - ASPARTATE AMINOTRANSFERASE INCREASED [None]
  - BLOOD CREATINE INCREASED [None]
  - BLOOD CREATINE PHOSPHOKINASE INCREASED [None]
  - BLOOD GLUCOSE INCREASED [None]
  - BLOOD PH INCREASED [None]
  - BLOOD UREA INCREASED [None]
  - CARDIAC ARREST [None]
  - COMA [None]
  - COMPLETED SUICIDE [None]
  - ELECTROCARDIOGRAM QRS COMPLEX SHORTENED [None]
  - HAEMATOCRIT DECREASED [None]
  - HEART RATE INCREASED [None]
  - HEPATIC CONGESTION [None]
  - INJURY [None]
  - INTENTIONAL MISUSE [None]
  - PCO2 DECREASED [None]
  - RESPIRATORY ARREST [None]
  - SINUS TACHYCARDIA [None]
